FAERS Safety Report 9003614 (Version 1)
Quarter: 2013Q1

REPORT INFORMATION
  Report Type: Other
  Country: ES (occurrence: ES)
  Receive Date: 20130108
  Receipt Date: 20130108
  Transmission Date: 20140127
  Serious: Yes (Other)
  Sender: FDA-Public Use
  Company Number: ES-WATSON-2012-23074

PATIENT
  Age: 55 Year
  Sex: Male

DRUGS (2)
  1. RAPAFLO (WATSON LABORATORIES) [Suspect]
     Indication: BENIGN PROSTATIC HYPERPLASIA
     Dosage: 8 MG,QD
     Route: 048
     Dates: start: 20120921, end: 20121106
  2. PANTOPRAZOL STADA [Concomitant]
     Indication: PRODUCT USED FOR UNKNOWN INDICATION
     Dosage: 40 MG, UNK
     Route: 048
     Dates: start: 20120604

REACTIONS (2)
  - Hypersomnia [Unknown]
  - Fatigue [Unknown]
